FAERS Safety Report 8476379-0 (Version None)
Quarter: 2012Q2

REPORT INFORMATION
  Report Type: 
  Country: None (occurrence: None)
  Receive Date: 20120622
  Receipt Date: 20120611
  Transmission Date: 20120825
  Serious: Yes (Other)
  Sender: FDA-Public Use
  Company Number: FK201201666

PATIENT
  Age: 16 Year
  Sex: Female

DRUGS (2)
  1. HEPARIN [Suspect]
     Dosage: HEPARINOID OINTMENT APPLIED, TOPICAL
     Route: 061
  2. HEPARIN [Suspect]
     Indication: INTRAVENOUS CATHETER MANAGEMENT
     Dosage: SMALL AMOUNT ADMINISTERED, INTRAVENOUS BOLUS
     Route: 042

REACTIONS (6)
  - ABDOMINAL PAIN [None]
  - MYALGIA [None]
  - TUMOUR NECROSIS FACTOR RECEPTOR-ASSOCIATED PERIODIC SYNDROME [None]
  - PYREXIA [None]
  - DYSPNOEA [None]
  - LOCALISED OEDEMA [None]
